FAERS Safety Report 21216246 (Version 2)
Quarter: 2022Q3

REPORT INFORMATION
  Report Type: Report from Study
  Country: JP (occurrence: JP)
  Receive Date: 20220816
  Receipt Date: 20220902
  Transmission Date: 20221026
  Serious: Yes (Hospitalization)
  Sender: FDA-Public Use
  Company Number: JP-CHUGAI-2022030747

PATIENT
  Age: 74 Year
  Sex: Female
  Weight: 41.5 kg

DRUGS (11)
  1. ATEZOLIZUMAB [Suspect]
     Active Substance: ATEZOLIZUMAB
     Indication: Hormone receptor positive breast cancer
     Dosage: 840 MILLIGRAM, DAY1, 15
     Route: 041
     Dates: start: 20210406, end: 20220301
  2. ATEZOLIZUMAB [Suspect]
     Active Substance: ATEZOLIZUMAB
     Indication: HER2 negative breast cancer
  3. PACLITAXEL [Concomitant]
     Active Substance: PACLITAXEL
     Indication: Hormone receptor positive breast cancer
     Dosage: 134 MILLIGRAM, DAY1, 8, 15
     Route: 042
     Dates: start: 20210406
  4. PACLITAXEL [Concomitant]
     Active Substance: PACLITAXEL
     Indication: HER2 negative breast cancer
     Dosage: 134 MILLIGRAM, DAY1, 8, 15
     Route: 042
     Dates: start: 20210914, end: 20220301
  5. AVASTIN [Concomitant]
     Active Substance: BEVACIZUMAB
     Indication: Hormone receptor positive breast cancer
     Dosage: 529 MILLIGRAM, DAY1, 15
     Route: 041
     Dates: start: 20210406, end: 20220301
  6. AVASTIN [Concomitant]
     Active Substance: BEVACIZUMAB
     Indication: HER2 negative breast cancer
  7. HALAVEN [Concomitant]
     Active Substance: ERIBULIN MESYLATE
     Indication: Breast cancer metastatic
     Dosage: 1.5 MILLIGRAM, ONCE/3WEEKS
     Route: 042
     Dates: start: 20220405, end: 20220712
  8. CALONAL [Concomitant]
     Active Substance: ACETAMINOPHEN
     Indication: Arthralgia
     Dosage: 300 MILLIGRAM, TID
     Route: 048
     Dates: start: 20220509, end: 20220802
  9. CALCIUM CARBONATE\CHOLECALCIFEROL\MAGNESIUM CARBONATE [Concomitant]
     Active Substance: CALCIUM CARBONATE\CHOLECALCIFEROL\MAGNESIUM CARBONATE
     Indication: Prophylaxis
     Dosage: 2 DOSAGE FORM, QD
     Route: 048
     Dates: start: 20191219
  10. DENOSUMAB [Concomitant]
     Active Substance: DENOSUMAB
     Indication: Metastases to bone
     Dosage: 120 MILLIGRAM, ONCE/4WEEKS
     Route: 058
     Dates: start: 20181012
  11. SODIUM GUALENATE [Concomitant]
     Active Substance: SODIUM GUALENATE
     Indication: Prophylaxis
     Dosage: UNK, PRN
     Dates: start: 20220329

REACTIONS (1)
  - Drug-induced liver injury [Recovering/Resolving]

NARRATIVE: CASE EVENT DATE: 20220802
